FAERS Safety Report 25623003 (Version 1)
Quarter: 2025Q3

REPORT INFORMATION
  Report Type: Spontaneous
  Country: US (occurrence: US)
  Receive Date: 20250730
  Receipt Date: 20250730
  Transmission Date: 20251021
  Serious: Yes (Death, Other)
  Sender: AMGEN
  Company Number: US-AMGEN-USASP2025146848

PATIENT
  Age: 39 Year
  Sex: Male

DRUGS (11)
  1. PREDNISONE [Suspect]
     Active Substance: PREDNISONE
     Indication: Bacterial sepsis
     Dosage: 20 MILLIGRAM, BID
     Route: 065
  2. VANCOMYCIN [Concomitant]
     Active Substance: VANCOMYCIN
     Indication: Staphylococcal sepsis
  3. CEFTRIAXONE [Concomitant]
     Active Substance: CEFTRIAXONE
     Indication: Staphylococcal sepsis
  4. DAPTOMYCIN [Concomitant]
     Active Substance: DAPTOMYCIN
     Indication: Staphylococcal sepsis
  5. TIGECYCLINE [Concomitant]
     Active Substance: TIGECYCLINE
     Indication: Staphylococcal sepsis
  6. TIGECYCLINE [Concomitant]
     Active Substance: TIGECYCLINE
     Indication: Mycobacterium chelonae infection
  7. LINEZOLID [Concomitant]
     Active Substance: LINEZOLID
     Indication: Staphylococcal sepsis
  8. IMIPENEM [Concomitant]
     Active Substance: IMIPENEM
     Indication: Staphylococcal sepsis
  9. AMIKACIN [Concomitant]
     Active Substance: AMIKACIN
     Indication: Staphylococcal sepsis
  10. MINOCYCLINE [Concomitant]
     Active Substance: MINOCYCLINE HYDROCHLORIDE
     Indication: Mycobacterium chelonae infection
  11. AZITHROMYCIN [Concomitant]
     Active Substance: AZITHROMYCIN
     Indication: Mycobacterium chelonae infection

REACTIONS (3)
  - Cardiac failure congestive [Fatal]
  - Immunosuppression [Unknown]
  - Off label use [Unknown]
